FAERS Safety Report 17022371 (Version 9)
Quarter: 2020Q3

REPORT INFORMATION
  Report Type: Report from Study
  Country: US (occurrence: US)
  Receive Date: 20191112
  Receipt Date: 20200729
  Transmission Date: 20201102
  Serious: Yes (Hospitalization)
  Sender: FDA-Public Use
  Company Number: US-ACTELION-A-US2019-196296

PATIENT
  Sex: Female
  Weight: 53.52 kg

DRUGS (9)
  1. LETAIRIS [Concomitant]
     Active Substance: AMBRISENTAN
  2. VELETRI [Suspect]
     Active Substance: EPOPROSTENOL
     Indication: PULMONARY ARTERIAL HYPERTENSION
     Dosage: 17 NG/KG, PER MIN
     Route: 042
  3. VELETRI [Suspect]
     Active Substance: EPOPROSTENOL
     Dosage: 11.4 NG/KG, PER MIN
     Route: 042
  4. VELETRI [Suspect]
     Active Substance: EPOPROSTENOL
     Dosage: 5 NG/KG, PER MIN
     Route: 042
  5. AMLODIPINE [Concomitant]
     Active Substance: AMLODIPINE BESYLATE
  6. VELETRI [Suspect]
     Active Substance: EPOPROSTENOL
     Dosage: 12.4 NG/KG, PER MIN
     Route: 042
  7. VELETRI [Suspect]
     Active Substance: EPOPROSTENOL
     Dosage: 8 NG/KG, PER MIN
     Route: 042
  8. VELETRI [Suspect]
     Active Substance: EPOPROSTENOL
     Dosage: 12 NG/KG, PER MIN
     Route: 042
  9. ELIQUIS [Concomitant]
     Active Substance: APIXABAN

REACTIONS (15)
  - Pain in jaw [Not Recovered/Not Resolved]
  - Chest discomfort [Unknown]
  - Catheter site haemorrhage [Unknown]
  - Headache [Unknown]
  - Dry mouth [Unknown]
  - Palpitations [Unknown]
  - Dyspnoea [Unknown]
  - Pain [Unknown]
  - Dry throat [Unknown]
  - Pneumonia [Unknown]
  - Pain in extremity [Unknown]
  - Hypotension [Unknown]
  - Diarrhoea [Unknown]
  - Catheter site discharge [Unknown]
  - Sickle cell anaemia with crisis [Unknown]
